FAERS Safety Report 5499241-4 (Version None)
Quarter: 2007Q4

REPORT INFORMATION
  Report Type: 
  Country: None (occurrence: None)
  Receive Date: 20071026
  Receipt Date: 20071017
  Transmission Date: 20080405
  Serious: Yes (Hospitalization)
  Sender: FDA-Public Use
  Company Number: JP-JNJFOC-20070603150

PATIENT
  Sex: Female

DRUGS (12)
  1. MICONAZOLE [Suspect]
     Route: 048
  2. MICONAZOLE [Suspect]
     Indication: DRUG USE FOR UNKNOWN INDICATION
     Route: 048
  3. WARFARIN POTASSIUM [Interacting]
     Route: 048
  4. WARFARIN POTASSIUM [Interacting]
     Indication: DEEP VEIN THROMBOSIS
     Route: 048
  5. LOXOPROFEN SODIUM [Concomitant]
     Route: 065
  6. TRICHLORMETHIAZIDE [Concomitant]
     Route: 048
  7. HEPARIN SODIUM [Concomitant]
     Route: 065
  8. PREDNISOLONE [Concomitant]
     Indication: POLYMYOSITIS
     Route: 048
  9. URSODESOXYCHOLIC ACID [Concomitant]
     Route: 048
  10. SENNOSIDE [Concomitant]
     Indication: CONSTIPATION
     Route: 048
  11. MAGNESIUM OXIDE [Concomitant]
     Indication: CONSTIPATION
     Route: 048
  12. POSTERISAN [Concomitant]
     Indication: HAEMORRHOIDS
     Route: 061

REACTIONS (4)
  - DIZZINESS [None]
  - DRUG INTERACTION [None]
  - GASTROINTESTINAL HAEMORRHAGE [None]
  - INTERNATIONAL NORMALISED RATIO INCREASED [None]
